FAERS Safety Report 5715722-X (Version None)
Quarter: 2008Q2

REPORT INFORMATION
  Report Type: 
  Country: None (occurrence: None)
  Receive Date: 20080422
  Receipt Date: 20080407
  Transmission Date: 20081010
  Serious: Yes (Death)
  Sender: FDA-Public Use
  Company Number: S07-GRC-06255-01

PATIENT
  Age: 63 Year
  Sex: Female

DRUGS (10)
  1. ESCITALOPRAM [Suspect]
     Indication: DEPRESSION
     Dosage: 10 MG QD PO
     Route: 048
     Dates: start: 20070830, end: 20070101
  2. ESCITALOPRAM [Suspect]
     Indication: DEPRESSION
     Dosage: 30 MG QD PO
     Route: 048
     Dates: start: 20070101, end: 20070905
  3. AMISULPRIDE [Concomitant]
  4. DIGOXIN [Concomitant]
  5. ACETYLSALICYLIC ACID SRT [Concomitant]
  6. CLOPIDOGREL [Concomitant]
  7. METOPROLOL TARTRATE [Concomitant]
  8. RAMIPRIL/ HYDROCHLOROTHIAZIDE [Concomitant]
  9. ALBUTEROL [Concomitant]
  10. IPRATROPIUM BROMIDE [Concomitant]

REACTIONS (2)
  - MYOCARDIAL INFARCTION [None]
  - OVERDOSE [None]
